FAERS Safety Report 24742651 (Version 1)
Quarter: 2024Q4

REPORT INFORMATION
  Report Type: Spontaneous
  Country: GB (occurrence: GB)
  Receive Date: 20241217
  Receipt Date: 20241217
  Transmission Date: 20250115
  Serious: Yes (Hospitalization, Other)
  Sender: AMGEN
  Company Number: GB-AMGEN-GBRSP2024243169

PATIENT
  Age: 64 Year
  Sex: Female

DRUGS (1)
  1. CINACALCET HYDROCHLORIDE [Suspect]
     Active Substance: CINACALCET HYDROCHLORIDE
     Indication: Hypercalcaemia
     Dosage: UNK
     Route: 065

REACTIONS (7)
  - Hypoparathyroidism [Unknown]
  - Hypocalcaemia [Unknown]
  - Parathyroid tumour benign [Unknown]
  - Therapy non-responder [Unknown]
  - Hyperparathyroidism primary [Unknown]
  - Parathyroid disorder [Unknown]
  - Hypercalcaemia [Unknown]
